FAERS Safety Report 6808991-6 (Version None)
Quarter: 2010Q2

REPORT INFORMATION
  Report Type: 
  Country: None (occurrence: None)
  Receive Date: 20100630
  Receipt Date: 20100104
  Transmission Date: 20101027
  Serious: No
  Sender: FDA-Public Use
  Company Number: US-PFIZER INC-2009220964

PATIENT
  Age: 51 Year
  Sex: Male

DRUGS (2)
  1. VIAGRA [Suspect]
     Dosage: UNK
  2. TESTOSTERONE CYPIONATE [Suspect]
     Dosage: 0.25 ML, EVERY 2 WEEKS
     Route: 030

REACTIONS (5)
  - BLOOD TESTOSTERONE DECREASED [None]
  - DRUG INEFFECTIVE [None]
  - EJACULATION DISORDER [None]
  - FLUSHING [None]
  - URINARY RETENTION [None]
